FAERS Safety Report 9041137 (Version 1)
Quarter: 2013Q1

REPORT INFORMATION
  Report Type: Spontaneous
  Country: US (occurrence: None)
  Receive Date: 20130124
  Receipt Date: 20130124
  Transmission Date: 20140127
  Serious: Yes (Hospitalization)
  Sender: FDA-Public Use
  Company Number: None

PATIENT
  Age: 36 Year
  Sex: Female
  Weight: 147.87 kg

DRUGS (1)
  1. ONDANSETRON [Suspect]
     Dosage: 4 MG.   4-6 HRS AS NEEDED  MOUTH
     Route: 048
     Dates: start: 20121217, end: 20121219

REACTIONS (5)
  - Constipation [None]
  - Rectal haemorrhage [None]
  - Pain [None]
  - Hypophagia [None]
  - Hypoglycaemia [None]
